FAERS Safety Report 20858770 (Version 1)
Quarter: 2022Q2

REPORT INFORMATION
  Report Type: Spontaneous
  Country: US (occurrence: US)
  Receive Date: 20220522
  Receipt Date: 20220522
  Transmission Date: 20220720
  Serious: No
  Sender: FDA-Public Use
  Company Number: US-GILEAD-2022-0582305

PATIENT
  Sex: Female

DRUGS (5)
  1. BIKTARVY [Suspect]
     Active Substance: BICTEGRAVIR SODIUM\EMTRICITABINE\TENOFOVIR ALAFENAMIDE FUMARATE
     Indication: HIV infection
     Dosage: TAKE 1 TABLET BY MOUTH ONCE DAILY
     Route: 065
  2. TYLENOL 8 HR ARTHRITIS PAIN [Concomitant]
     Active Substance: ACETAMINOPHEN
  3. MULTI COMPLETE [Concomitant]
  4. LEVOTHYROXINE SODIUM [Concomitant]
     Active Substance: LEVOTHYROXINE SODIUM
  5. ESCITALOPRAM OXALATE [Concomitant]
     Active Substance: ESCITALOPRAM OXALATE

REACTIONS (1)
  - Product dose omission issue [Unknown]
